FAERS Safety Report 16613200 (Version 1)
Quarter: 2019Q3

REPORT INFORMATION
  Report Type: Spontaneous
  Country: US (occurrence: US)
  Receive Date: 20190722
  Receipt Date: 20190722
  Transmission Date: 20191004
  Serious: No
  Sender: FDA-Public Use
  Company Number: US-GALDERMA-US19041616

PATIENT
  Age: 68 Year
  Sex: Female

DRUGS (12)
  1. VITAMINS B [Concomitant]
  2. PROACTIV MD ADAPALENE ACNE TREATMENT [Suspect]
     Active Substance: ADAPALENE
     Indication: PRODUCT USED FOR UNKNOWN INDICATION
     Dosage: 0.1%
     Route: 061
     Dates: start: 20180917, end: 20181026
  3. FENOFIBRATE. [Concomitant]
     Active Substance: FENOFIBRATE
  4. RANITIDINE. [Concomitant]
     Active Substance: RANITIDINE
  5. PROACTIV MD DAILY OIL CONTROL SPF 30 [Suspect]
     Active Substance: AVOBENZONE\OCTISALATE\OCTOCRYLENE
     Indication: PRODUCT USED FOR UNKNOWN INDICATION
     Route: 061
     Dates: start: 20180917, end: 20181026
  6. MONTELUKAST [Concomitant]
     Active Substance: MONTELUKAST SODIUM
  7. PROACTIV CLEANSING BODY BAR [Concomitant]
     Active Substance: SALICYLIC ACID
     Indication: PRODUCT USED FOR UNKNOWN INDICATION
     Route: 061
     Dates: start: 20180917, end: 20181026
  8. PROBIOTICS [Concomitant]
     Active Substance: PROBIOTICS NOS
  9. VITAMINS E [Concomitant]
  10. PROACTIV MD DEEP CLEANSING FACE WASH [Concomitant]
     Active Substance: COSMETICS
     Indication: PRODUCT USED FOR UNKNOWN INDICATION
     Route: 061
     Dates: start: 20180917, end: 20181026
  11. PROACTIV GREEN TEA MOISTURIZER [Concomitant]
     Active Substance: COSMETICS
     Indication: PRODUCT USED FOR UNKNOWN INDICATION
     Route: 061
     Dates: start: 20180917, end: 20181026
  12. VITAMINS C [Concomitant]

REACTIONS (1)
  - Acne cystic [Recovering/Resolving]

NARRATIVE: CASE EVENT DATE: 201810
